FAERS Safety Report 25067984 (Version 2)
Quarter: 2025Q1

REPORT INFORMATION
  Report Type: Spontaneous
  Country: RU (occurrence: GB)
  Receive Date: 20250312
  Receipt Date: 20250321
  Transmission Date: 20250409
  Serious: No
  Sender: MYLAN
  Company Number: RU-MYLANLABS-2025M1019168

PATIENT
  Sex: Female

DRUGS (3)
  1. ZOLOFT [Suspect]
     Active Substance: SERTRALINE HYDROCHLORIDE
     Indication: Product used for unknown indication
  2. ZOLOFT [Suspect]
     Active Substance: SERTRALINE HYDROCHLORIDE
  3. TRAZODONE HYDROCHLORIDE [Concomitant]
     Active Substance: TRAZODONE HYDROCHLORIDE
     Indication: Insomnia

REACTIONS (3)
  - Autonomic nervous system imbalance [Unknown]
  - Obsessive thoughts [Unknown]
  - Hot flush [Unknown]

NARRATIVE: CASE EVENT DATE: 20250101
